FAERS Safety Report 6955540-8 (Version None)
Quarter: 2010Q3

REPORT INFORMATION
  Report Type: 
  Country: None (occurrence: None)
  Receive Date: 20100826
  Receipt Date: 20100826
  Transmission Date: 20110219
  Serious: Yes (Hospitalization)
  Sender: FDA-Public Use
  Company Number: None

PATIENT
  Sex: Male
  Weight: 48.9 kg

DRUGS (6)
  1. GEMCITABINE [Suspect]
     Indication: PANCREATIC CARCINOMA
     Dosage: 1000MG/M2 EVERY 2 WEEKS IV DRIP
     Route: 041
     Dates: start: 20090730, end: 20100806
  2. CAPECITABINE [Suspect]
     Indication: PANCREATIC CARCINOMA
     Dosage: 1000 MG/M2 BID DAYS 1-7/14 PO
     Route: 048
     Dates: start: 20090730, end: 20100806
  3. FENTANYL-75 [Concomitant]
  4. LEXAPRO [Concomitant]
  5. ZOFRAN [Concomitant]
  6. TYLENOL W/ CODEINE NO. 3 [Concomitant]

REACTIONS (11)
  - ARRHYTHMIA [None]
  - ASTHENIA [None]
  - FAILURE TO THRIVE [None]
  - FATIGUE [None]
  - INSOMNIA [None]
  - PNEUMONIA [None]
  - PULMONARY EMBOLISM [None]
  - PYREXIA [None]
  - RENAL TUBULAR NECROSIS [None]
  - THROMBOCYTOPENIA [None]
  - URINARY TRACT INFECTION [None]
